FAERS Safety Report 10098636 (Version 1)
Quarter: 2014Q2

REPORT INFORMATION
  Report Type: Spontaneous
  Country: IT (occurrence: None)
  Receive Date: 20140421
  Receipt Date: 20140421
  Transmission Date: 20141212
  Serious: No
  Sender: FDA-Public Use
  Company Number: IT-2014-0792

PATIENT
  Age: 62 Year
  Sex: Female

DRUGS (3)
  1. NAVELBINE [Suspect]
     Indication: BREAST CANCER
     Route: 042
     Dates: start: 20140217, end: 20140217
  2. HERCEPTIN [Suspect]
     Indication: BREAST CANCER
     Route: 042
     Dates: start: 20140217, end: 20140217
  3. TRIMETON (CHLORPHENAMINE MALEATE) [Concomitant]

REACTIONS (3)
  - Febrile convulsion [None]
  - Abdominal pain [None]
  - Abdominal pain upper [None]
